FAERS Safety Report 8499313-6 (Version None)
Quarter: 2012Q3

REPORT INFORMATION
  Report Type: 
  Country: None (occurrence: None)
  Receive Date: 20120710
  Receipt Date: 20120705
  Transmission Date: 20120928
  Serious: Yes (Other)
  Sender: FDA-Public Use
  Company Number: US-AMGEN-USASP2011032385

PATIENT
  Age: 26 Year
  Sex: Female

DRUGS (3)
  1. PAXIL [Concomitant]
     Indication: HEAD INJURY
     Dosage: UNK
  2. ENBREL [Suspect]
     Dosage: 50 MG, QWK
     Dates: start: 20110622
  3. ENBREL [Suspect]
     Indication: RHEUMATOID ARTHRITIS
     Dosage: 50 MG, QWK
     Dates: start: 20110505

REACTIONS (14)
  - PALPITATIONS [None]
  - NAUSEA [None]
  - FATIGUE [None]
  - FEELING ABNORMAL [None]
  - DIZZINESS [None]
  - ASTHENIA [None]
  - INJECTION SITE PAIN [None]
  - DEPRESSION [None]
  - VISUAL IMPAIRMENT [None]
  - ANXIETY [None]
  - INFLUENZA LIKE ILLNESS [None]
  - BACK PAIN [None]
  - PARAESTHESIA [None]
  - SINUSITIS [None]
